FAERS Safety Report 5460720-7 (Version None)
Quarter: 2007Q3

REPORT INFORMATION
  Report Type: 
  Country: None (occurrence: None)
  Receive Date: 20070919
  Receipt Date: 20070910
  Transmission Date: 20080115
  Serious: Yes (Hospitalization, Other)
  Sender: FDA-Public Use
  Company Number: BE-MERCK-0708BEL00038

PATIENT
  Age: 69 Year
  Sex: Male
  Weight: 70 kg

DRUGS (4)
  1. COZAAR [Suspect]
     Indication: HYPERTENSION
     Route: 048
     Dates: start: 20051208
  2. DIURETIC (UNSPECIFIED) [Concomitant]
     Indication: HYPERTENSION
     Route: 048
     Dates: start: 20040722
  3. [THERAPY UNSPECIFIED] [Concomitant]
     Indication: HYPERTENSION
     Route: 048
     Dates: start: 20040722
  4. [THERAPY UNSPECIFIED] [Concomitant]
     Route: 048
     Dates: start: 20040823

REACTIONS (1)
  - CORONARY ARTERY DISEASE [None]
